FAERS Safety Report 9271982 (Version 1)
Quarter: 2013Q2

REPORT INFORMATION
  Report Type: Spontaneous
  Country: US (occurrence: US)
  Receive Date: 20130506
  Receipt Date: 20130506
  Transmission Date: 20140414
  Serious: No
  Sender: FDA-Public Use
  Company Number: US-009507513-1305USA001269

PATIENT
  Sex: Female

DRUGS (2)
  1. JANUVIA [Suspect]
     Dosage: 50 MG, FREQUENCY UNSPECIFIED
     Route: 048
  2. JANUVIA [Suspect]
     Dosage: 25 MG, UNK
     Route: 048

REACTIONS (2)
  - Renal disorder [Unknown]
  - Somnolence [Unknown]
